FAERS Safety Report 14740206 (Version 10)
Quarter: 2021Q2

REPORT INFORMATION
  Report Type: Spontaneous
  Country: US (occurrence: US)
  Receive Date: 20180410
  Receipt Date: 20210423
  Transmission Date: 20210716
  Serious: No
  Sender: FDA-Public Use
  Company Number: US-PFIZER INC-2018047578

PATIENT
  Age: 15 Year
  Sex: Male
  Weight: 81 kg

DRUGS (9)
  1. KEPPRA XR [Concomitant]
     Active Substance: LEVETIRACETAM
     Indication: SEIZURE
     Dosage: 750 MG, 1X/DAY
     Route: 048
     Dates: start: 2007
  2. SYNTHROID [Concomitant]
     Active Substance: LEVOTHYROXINE SODIUM
     Indication: THYROID DISORDER
     Dosage: 112 MG, 1X/DAY
     Route: 048
     Dates: start: 200207
  3. GENOTROPIN [Suspect]
     Active Substance: SOMATROPIN
     Dosage: 0.04 MG, UNK
     Dates: start: 2005
  4. KEPPRA XR [Concomitant]
     Active Substance: LEVETIRACETAM
     Dosage: UNK
     Dates: start: 2008
  5. TESTOSTERONE. [Concomitant]
     Active Substance: TESTOSTERONE
     Indication: PUBERTY
     Dosage: 200 ML, UNK (EVERY 10 DAYS)
     Route: 030
     Dates: start: 2014
  6. GENOTROPIN [Suspect]
     Active Substance: SOMATROPIN
     Indication: HYPOTHALAMO-PITUITARY DISORDER
     Dosage: 0.4 MG, DAILY (7 DAYS/WEEK)
     Route: 058
     Dates: start: 200311
  7. GENOTROPIN [Suspect]
     Active Substance: SOMATROPIN
     Indication: HYPOPITUITARISM
     Dosage: 0.04 MG, ONCE DAILY
     Route: 058
  8. HYDROCORTISONE. [Concomitant]
     Active Substance: HYDROCORTISONE
     Indication: HYPOPITUITARISM
     Dosage: 25 MG, DAILY (15 MG IN THE MORNING, 5 MG INT THE AFTERNOON AND 5 MG AT BEDTIME)
     Route: 048
     Dates: start: 200207
  9. TESTOSTERONE. [Concomitant]
     Active Substance: TESTOSTERONE
     Indication: DEVELOPMENTAL DELAY
     Dosage: UNK
     Dates: start: 2015

REACTIONS (5)
  - Device power source issue [Unknown]
  - Product dose omission issue [Unknown]
  - Drug dose omission by device [Unknown]
  - Myalgia [Recovered/Resolved]
  - Back pain [Recovered/Resolved]

NARRATIVE: CASE EVENT DATE: 2013
